FAERS Safety Report 18534653 (Version 1)
Quarter: 2020Q4

REPORT INFORMATION
  Report Type: Spontaneous
  Country: US (occurrence: US)
  Receive Date: 20201123
  Receipt Date: 20201123
  Transmission Date: 20210114
  Serious: Yes (Death, Hospitalization)
  Sender: FDA-Public Use
  Company Number: US-MYLANLABS-2020M1096063

PATIENT
  Age: 36 Year
  Sex: Male

DRUGS (15)
  1. DEXAMETHASONE. [Suspect]
     Active Substance: DEXAMETHASONE
     Indication: COCCIDIOIDOMYCOSIS
     Dosage: 3 MILLIGRAM, Q6H
     Route: 042
  2. DEXAMETHASONE. [Suspect]
     Active Substance: DEXAMETHASONE
     Indication: MENINGITIS FUNGAL
     Dosage: 1 MILLIGRAM, BID
     Route: 042
  3. VORICONAZOLE. [Suspect]
     Active Substance: VORICONAZOLE
     Indication: MENINGITIS FUNGAL
  4. AMPHOTERICIN B, LIPOSOME [Concomitant]
     Active Substance: AMPHOTERICIN B
     Indication: MENINGITIS FUNGAL
  5. AMPHOTERICIN-B [Concomitant]
     Active Substance: AMPHOTERICIN B
     Indication: COCCIDIOIDOMYCOSIS
     Route: 065
  6. FLUCONAZOLE. [Suspect]
     Active Substance: FLUCONAZOLE
     Indication: COCCIDIOIDOMYCOSIS
     Dosage: 800 MILLIGRAM, QD
     Route: 048
  7. POSACONAZOLE [Concomitant]
     Active Substance: POSACONAZOLE
     Indication: MENINGITIS FUNGAL
  8. FLUCONAZOLE. [Suspect]
     Active Substance: FLUCONAZOLE
     Indication: MENINGITIS FUNGAL
     Dosage: 1200 MILLIGRAM, QD
     Route: 048
  9. CLONIDINE. [Suspect]
     Active Substance: CLONIDINE
     Indication: HYPERTENSION
     Route: 065
  10. POSACONAZOLE [Concomitant]
     Active Substance: POSACONAZOLE
     Indication: COCCIDIOIDOMYCOSIS
     Dosage: 300 MILLIGRAM, QD
     Route: 042
  11. AMPHOTERICIN B, LIPOSOME [Concomitant]
     Active Substance: AMPHOTERICIN B
     Indication: COCCIDIOIDOMYCOSIS
     Dosage: 5 MILLIGRAM/KILOGRAM, QD
     Route: 042
  12. AMPHOTERICIN-B [Concomitant]
     Active Substance: AMPHOTERICIN B
     Indication: MENINGITIS FUNGAL
  13. DEXAMETHASONE. [Suspect]
     Active Substance: DEXAMETHASONE
     Indication: COCCIDIOIDOMYCOSIS
     Dosage: 4 MILLIGRAM, Q6H
     Route: 048
  14. VORICONAZOLE. [Suspect]
     Active Substance: VORICONAZOLE
     Indication: COCCIDIOIDOMYCOSIS
     Dosage: 400 MILLIGRAM, BID
     Route: 048
  15. DEXAMETHASONE. [Suspect]
     Active Substance: DEXAMETHASONE
     Indication: MENINGITIS FUNGAL
     Dosage: 1 MILLIGRAM, QD
     Route: 048

REACTIONS (4)
  - Gastrointestinal wall thinning [Fatal]
  - Large intestine perforation [Fatal]
  - Withdrawal hypertension [Recovered/Resolved]
  - Hepatotoxicity [Unknown]
